FAERS Safety Report 9501384 (Version 2)
Quarter: 2014Q1

REPORT INFORMATION
  Report Type: Spontaneous
  Country: US (occurrence: None)
  Receive Date: 20130225
  Receipt Date: 20140225
  Transmission Date: 20141002
  Serious: Yes (Hospitalization, Other)
  Sender: FDA-Public Use
  Company Number: 2012-558

PATIENT
  Age: 76 Year
  Sex: Male

DRUGS (1)
  1. PRIALT (ZICONOTIDE) INTRATHECAL INFUSION [Suspect]
     Indication: BACK PAIN
     Dosage: 2UG, SINGLE BOLUS, INTRATHECAL
     Route: 037
     Dates: start: 20120731, end: 20120731

REACTIONS (8)
  - Urinary retention [None]
  - Fatigue [None]
  - Dysarthria [None]
  - Musculoskeletal stiffness [None]
  - Meningitis [None]
  - Insomnia [None]
  - Amnesia [None]
  - Confusional state [None]
